FAERS Safety Report 9985498 (Version 1)
Quarter: 2014Q1

REPORT INFORMATION
  Report Type: Spontaneous
  Country: US (occurrence: US)
  Receive Date: 20140307
  Receipt Date: 20140307
  Transmission Date: 20141002
  Serious: No
  Sender: FDA-Public Use
  Company Number: US-GILEAD-2012-0061629

PATIENT
  Age: 47 Year
  Sex: Male

DRUGS (3)
  1. ATRIPLA [Suspect]
  2. TRUVADA [Suspect]
  3. SUSTIVA [Concomitant]

REACTIONS (1)
  - Mental impairment [Unknown]
